FAERS Safety Report 5014285-4 (Version None)
Quarter: 2006Q2

REPORT INFORMATION
  Report Type: 
  Country: None (occurrence: None)
  Receive Date: 20060414
  Receipt Date: 20051215
  Transmission Date: 20061013
  Serious: No
  Sender: FDA-Public Use
  Company Number: 2005SP004373

PATIENT
  Age: 42 Year
  Sex: Male
  Weight: 98.8842 kg

DRUGS (4)
  1. LUNESTA [Suspect]
     Indication: HYPERTENSION
     Dosage: 3 MG; ORAL
     Route: 048
     Dates: start: 20051129, end: 20051130
  2. LUNESTA [Suspect]
     Indication: INSOMNIA
     Dosage: 3 MG; ORAL
     Route: 048
     Dates: start: 20051129, end: 20051130
  3. CARDIZEM [Concomitant]
  4. AVALIDE [Concomitant]

REACTIONS (3)
  - DRUG INEFFECTIVE [None]
  - DYSGEUSIA [None]
  - INITIAL INSOMNIA [None]
